FAERS Safety Report 16462002 (Version 2)
Quarter: 2020Q1

REPORT INFORMATION
  Report Type: Spontaneous
  Country: IT (occurrence: IT)
  Receive Date: 20190621
  Receipt Date: 20200221
  Transmission Date: 20200409
  Serious: Yes (Other)
  Sender: FDA-Public Use
  Company Number: IT-SUN PHARMACEUTICAL INDUSTRIES LTD-2019R1-211226

PATIENT
  Sex: Female

DRUGS (4)
  1. DOXORUBICIN [Suspect]
     Active Substance: DOXORUBICIN
     Indication: HODGKIN^S DISEASE
     Dosage: SIX CYCLES AS ABVD REGIMEN
     Route: 065
  2. VINBLASTINE [Suspect]
     Active Substance: VINBLASTINE
     Indication: HODGKIN^S DISEASE
     Dosage: SIX CYCLES AS ABVD REGIMEN
     Route: 065
  3. BLEOMYCIN [Suspect]
     Active Substance: BLEOMYCIN SULFATE
     Indication: HODGKIN^S DISEASE
     Dosage: SIX CYCLES AS ABVD REGIMEN
     Route: 065
  4. DACARBAZINE. [Suspect]
     Active Substance: DACARBAZINE
     Indication: HODGKIN^S DISEASE
     Dosage: SIX CYCLES AS ABVD REGIMEN
     Route: 065

REACTIONS (4)
  - Premature menopause [Unknown]
  - Amenorrhoea [Recovering/Resolving]
  - Oligomenorrhoea [Recovering/Resolving]
  - Menopausal symptoms [Recovered/Resolved]

NARRATIVE: CASE EVENT DATE: 2011
